FAERS Safety Report 9815699 (Version 1)
Quarter: 2014Q1

REPORT INFORMATION
  Report Type: Spontaneous
  Country: IN (occurrence: None)
  Receive Date: 20140110
  Receipt Date: 20140110
  Transmission Date: 20141002
  Serious: Yes (Hospitalization, Congenital Anomaly)
  Sender: FDA-Public Use
  Company Number: 2013/224

PATIENT
  Age: 1 Day
  Sex: Female
  Weight: 3.8 kg

DRUGS (1)
  1. VALPROIC ACID [Suspect]

REACTIONS (7)
  - Foetal anticonvulsant syndrome [None]
  - Cyanosis central [None]
  - Hepatomegaly [None]
  - Respiratory distress [None]
  - Maternal drugs affecting foetus [None]
  - Cardiac failure [None]
  - Cardiomegaly [None]
